FAERS Safety Report 25775318 (Version 2)
Quarter: 2025Q4

REPORT INFORMATION
  Report Type: Spontaneous
  Country: US (occurrence: US)
  Receive Date: 20250909
  Receipt Date: 20251117
  Transmission Date: 20260117
  Serious: No
  Sender: SANOFI AVENTIS
  Company Number: US-SA-2025SA266003

PATIENT
  Age: 54 Year
  Sex: Female
  Weight: 61.27 kg

DRUGS (1)
  1. DUPIXENT [Suspect]
     Active Substance: DUPILUMAB
     Indication: Asthma
     Dosage: 300 MG, QOW
     Route: 058

REACTIONS (5)
  - Rash erythematous [Unknown]
  - Swelling [Unknown]
  - Skin irritation [Unknown]
  - COVID-19 [Unknown]
  - Eczema [Unknown]

NARRATIVE: CASE EVENT DATE: 20250101
